FAERS Safety Report 5337508-0 (Version None)
Quarter: 2007Q2

REPORT INFORMATION
  Report Type: 
  Country: None (occurrence: None)
  Receive Date: 20070529
  Receipt Date: 20070521
  Transmission Date: 20071010
  Serious: Yes (Life-Threatening)
  Sender: FDA-Public Use
  Company Number: GB-AMGEN-US218814

PATIENT
  Sex: Male

DRUGS (3)
  1. ENBREL [Suspect]
     Indication: DRUG USE FOR UNKNOWN INDICATION
     Route: 058
     Dates: start: 20070301
  2. PREDNISOLONE [Concomitant]
     Dosage: 1MG/KG, FREQUENCY UNSPECIFIED
  3. UNSPECIFIED ANTIBIOTIC [Concomitant]

REACTIONS (1)
  - HYPERTENSION [None]
